FAERS Safety Report 4872013-7 (Version None)
Quarter: 2005Q4

REPORT INFORMATION
  Report Type: 
  Country: None (occurrence: None)
  Receive Date: 20051230
  Receipt Date: 20051212
  Transmission Date: 20060501
  Serious: Yes (Death, Hospitalization, Other)
  Sender: FDA-Public Use
  Company Number: US_0506119527

PATIENT
  Age: 32 Year
  Sex: Male
  Weight: 84.1 kg

DRUGS (7)
  1. ZYPREXA [Suspect]
     Indication: SCHIZOPHRENIA, PARANOID TYPE
     Dosage: 30 MG, DAILY (1/D), ORAL
     Route: 048
     Dates: start: 19970101
  2. KLONOPIN [Concomitant]
  3. PAXIL [Concomitant]
  4. AMBIEN [Concomitant]
  5. SONATA [Concomitant]
  6. IBUPROFEN [Concomitant]
  7. ALEVE [Concomitant]

REACTIONS (34)
  - ALCOHOLISM [None]
  - ANXIETY [None]
  - ATELECTASIS [None]
  - BLOOD POTASSIUM INCREASED [None]
  - DIABETIC KETOACIDOSIS [None]
  - ELECTROLYTE IMBALANCE [None]
  - FAMILY STRESS [None]
  - FLUID RETENTION [None]
  - GALLBLADDER DISORDER [None]
  - HAEMATOCRIT DECREASED [None]
  - HEPATIC STEATOSIS [None]
  - HEPATOMEGALY [None]
  - HYPERCALCAEMIA [None]
  - HYPERGLYCAEMIA [None]
  - HYPOCHLORAEMIA [None]
  - HYPOKALAEMIA [None]
  - HYPONATRAEMIA [None]
  - INCREASED APPETITE [None]
  - LUNG INFILTRATION [None]
  - LYMPHOCYTE PERCENTAGE DECREASED [None]
  - METABOLIC ACIDOSIS [None]
  - NEUTROPHIL PERCENTAGE DECREASED [None]
  - NEUTROPHIL PERCENTAGE INCREASED [None]
  - OBSTRUCTION [None]
  - PANCREATITIS [None]
  - PNEUMONIA [None]
  - POLYDIPSIA [None]
  - PRESCRIBED OVERDOSE [None]
  - PULMONARY CONGESTION [None]
  - RENAL FAILURE ACUTE [None]
  - RHABDOMYOLYSIS [None]
  - VOLUME BLOOD DECREASED [None]
  - WEIGHT INCREASED [None]
  - WHITE BLOOD CELL COUNT INCREASED [None]
